FAERS Safety Report 11465537 (Version 4)
Quarter: 2015Q4

REPORT INFORMATION
  Report Type: Spontaneous
  Country: US (occurrence: US)
  Receive Date: 20150907
  Receipt Date: 20151216
  Transmission Date: 20160304
  Serious: Yes (Hospitalization, Other)
  Sender: FDA-Public Use
  Company Number: US-ROCHE-ITM201503IM011661

PATIENT
  Sex: Male

DRUGS (2)
  1. ASPIRIN. [Concomitant]
     Active Substance: ASPIRIN
  2. ESBRIET [Suspect]
     Active Substance: PIRFENIDONE
     Indication: IDIOPATHIC PULMONARY FIBROSIS
     Dosage: 3 CAPSULES THRICE DAILY WITH FOOD.
     Route: 048
     Dates: start: 20150120

REACTIONS (8)
  - Abdominal pain upper [Unknown]
  - Pneumonia [Unknown]
  - Gallbladder disorder [Unknown]
  - Erythema [Unknown]
  - Pain [Unknown]
  - Photosensitivity reaction [Unknown]
  - Dry skin [Unknown]
  - Pulmonary mycosis [Not Recovered/Not Resolved]
